FAERS Safety Report 23619609 (Version 3)
Quarter: 2024Q2

REPORT INFORMATION
  Report Type: Spontaneous
  Country: JP (occurrence: JP)
  Receive Date: 20240312
  Receipt Date: 20240603
  Transmission Date: 20240715
  Serious: Yes (Hospitalization, Other)
  Sender: FDA-Public Use
  Company Number: JP-MSD-M2024-07004

PATIENT
  Age: 58 Year
  Sex: Female
  Weight: 67 kg

DRUGS (6)
  1. KEYTRUDA [Suspect]
     Active Substance: PEMBROLIZUMAB
     Indication: Triple negative breast cancer
     Dosage: 200 MILLIGRAM, Q3W
     Route: 041
     Dates: start: 20231208, end: 20240216
  2. CARBOPLATIN [Suspect]
     Active Substance: CARBOPLATIN
     Indication: Triple negative breast cancer
     Dosage: 570 MILLIGRAM, Q3W
     Route: 041
     Dates: start: 20231208, end: 20240216
  3. PACLITAXEL [Suspect]
     Active Substance: PACLITAXEL
     Indication: Triple negative breast cancer
     Dosage: 130 MILLIGRAM, QW
     Route: 041
     Dates: start: 20231208, end: 20240216
  4. LEVOTHYROXINE SODIUM [Concomitant]
     Active Substance: LEVOTHYROXINE SODIUM
     Indication: Autoimmune thyroiditis
     Dosage: 50 ?G/DAY
     Route: 048
     Dates: end: 20240111
  5. LEVOTHYROXINE SODIUM [Concomitant]
     Active Substance: LEVOTHYROXINE SODIUM
     Dosage: 75 ?G/DAY
     Route: 048
     Dates: start: 20240112, end: 20240201
  6. LEVOTHYROXINE SODIUM [Concomitant]
     Active Substance: LEVOTHYROXINE SODIUM
     Dosage: 100 ?G/DAY
     Route: 048
     Dates: start: 20240202, end: 20240330

REACTIONS (5)
  - Autoimmune thyroiditis [Recovering/Resolving]
  - Immune-mediated hypothyroidism [Recovering/Resolving]
  - Immune-mediated adrenal insufficiency [Recovering/Resolving]
  - Epigastric discomfort [Recovering/Resolving]
  - Hepatic function abnormal [Recovered/Resolved]

NARRATIVE: CASE EVENT DATE: 20231215
